FAERS Safety Report 5119726-X (Version None)
Quarter: 2006Q3

REPORT INFORMATION
  Report Type: 
  Country: None (occurrence: None)
  Receive Date: 20060929
  Receipt Date: 20060919
  Transmission Date: 20061208
  Serious: Yes (Death, Hospitalization)
  Sender: FDA-Public Use
  Company Number: JP-2006-028142

PATIENT
  Age: 71 Year
  Sex: Female

DRUGS (4)
  1. SOTALOL HYDROCHLORIDE [Suspect]
     Indication: CARDIAC FAILURE
     Dosage: 40 MG, 2X/DAY, ORAL
     Route: 048
     Dates: start: 20050220, end: 20050918
  2. LASIX [Concomitant]
  3. CATABON [Concomitant]
  4. LANIRAPID (METILDIGOXIN) [Concomitant]

REACTIONS (2)
  - CARDIAC FAILURE [None]
  - CONDITION AGGRAVATED [None]
